FAERS Safety Report 20461693 (Version 1)
Quarter: 2022Q1

REPORT INFORMATION
  Report Type: Spontaneous
  Country: US (occurrence: US)
  Receive Date: 20220211
  Receipt Date: 20220211
  Transmission Date: 20220423
  Serious: No
  Sender: FDA-Public Use
  Company Number: US-ORGANON-O2202USA000309

PATIENT
  Age: 19 Year
  Sex: Male

DRUGS (2)
  1. COZAAR [Suspect]
     Active Substance: LOSARTAN POTASSIUM
     Indication: Aortic aneurysm
     Dosage: 50 MILLIGRAM, QD
     Route: 048
  2. ATENOLOL [Concomitant]
     Active Substance: ATENOLOL
     Indication: Aortic aneurysm
     Dosage: 100 MILLIGRAM, QD

REACTIONS (1)
  - Product use in unapproved indication [Unknown]
